FAERS Safety Report 7448994-4 (Version None)
Quarter: 2011Q2

REPORT INFORMATION
  Report Type: 
  Country: None (occurrence: None)
  Receive Date: 20110429
  Receipt Date: 20110428
  Transmission Date: 20111010
  Serious: Yes (Disabling)
  Sender: FDA-Public Use
  Company Number: GB-MERCK-1104GBR00130

PATIENT
  Age: 63 Year
  Sex: Female
  Weight: 103 kg

DRUGS (3)
  1. JANUVIA [Suspect]
     Route: 048
     Dates: start: 20080507, end: 20110308
  2. METFORMIN [Concomitant]
     Route: 065
  3. SIMVASTATIN [Concomitant]
     Route: 048

REACTIONS (2)
  - DEPRESSED MOOD [None]
  - DEPRESSION [None]
